FAERS Safety Report 12595635 (Version 1)
Quarter: 2016Q3

REPORT INFORMATION
  Report Type: Report from Study
  Country: US (occurrence: US)
  Receive Date: 20160726
  Receipt Date: 20160726
  Transmission Date: 20161109
  Serious: No
  Sender: FDA-Public Use
  Company Number: US-AMGEN-USASL2016016100

PATIENT
  Age: 76 Year
  Sex: Male

DRUGS (3)
  1. KYPROLIS [Suspect]
     Active Substance: CARFILZOMIB
     Dosage: UNK, Q2WK
     Route: 065
     Dates: start: 2016
  2. KYPROLIS [Suspect]
     Active Substance: CARFILZOMIB
     Indication: PLASMA CELL MYELOMA
     Dosage: UNK
     Route: 065
     Dates: start: 201411
  3. AUGMENTIN [Concomitant]
     Active Substance: AMOXICILLIN\CLAVULANATE POTASSIUM
     Dosage: UNK

REACTIONS (2)
  - Cerumen removal [Unknown]
  - Balance disorder [Unknown]

NARRATIVE: CASE EVENT DATE: 201601
